FAERS Safety Report 10914346 (Version 1)
Quarter: 2015Q1

REPORT INFORMATION
  Report Type: Spontaneous
  Country: US (occurrence: US)
  Receive Date: 20150313
  Receipt Date: 20150313
  Transmission Date: 20150721
  Serious: Yes (Hospitalization, Other)
  Sender: FDA-Public Use
  Company Number: US-GLAXOSMITHKLINE-US2015032508

PATIENT
  Age: 54 Year
  Sex: Female

DRUGS (3)
  1. ADVAIR DISKUS [Suspect]
     Active Substance: FLUTICASONE PROPIONATE\SALMETEROL XINAFOATE
     Indication: ASTHMA LATE ONSET
     Dosage: 1 PUFF(S), BID
     Route: 055
     Dates: start: 20150218, end: 20150224
  2. IBUPROFEN. [Concomitant]
     Active Substance: IBUPROFEN
  3. PREDNISONE. [Concomitant]
     Active Substance: PREDNISONE

REACTIONS (16)
  - Seizure [Recovering/Resolving]
  - Dysstasia [Recovering/Resolving]
  - Myalgia [Recovering/Resolving]
  - Activities of daily living impaired [Recovering/Resolving]
  - Abasia [Recovering/Resolving]
  - Chills [Recovering/Resolving]
  - Paraesthesia [Unknown]
  - Aphonia [Recovering/Resolving]
  - Gait disturbance [Unknown]
  - Immobile [Recovering/Resolving]
  - Movement disorder [Recovering/Resolving]
  - Muscle disorder [Recovering/Resolving]
  - Feeling cold [Recovering/Resolving]
  - Arthralgia [Recovering/Resolving]
  - Asthenia [Recovering/Resolving]
  - Pain [Recovering/Resolving]

NARRATIVE: CASE EVENT DATE: 201502
